FAERS Safety Report 15121418 (Version 1)
Quarter: 2018Q3

REPORT INFORMATION
  Report Type: Spontaneous
  Country: US (occurrence: US)
  Receive Date: 20180709
  Receipt Date: 20180709
  Transmission Date: 20181010
  Serious: Yes (Other)
  Sender: FDA-Public Use
  Company Number: US-SA-2018SA038641

PATIENT
  Age: 64 Year
  Sex: Female
  Weight: 103 kg

DRUGS (7)
  1. ATENOLOL. [Concomitant]
     Active Substance: ATENOLOL
     Dosage: UNK UNK,UNK
     Route: 065
     Dates: start: 2012
  2. TAXOTERE [Suspect]
     Active Substance: DOCETAXEL
     Dosage: 130 MG,Q3W
     Route: 042
     Dates: start: 20140623, end: 20140623
  3. CARBOPLATIN. [Concomitant]
     Active Substance: CARBOPLATIN
  4. TAXOTERE [Suspect]
     Active Substance: DOCETAXEL
     Indication: BREAST CANCER FEMALE
     Dosage: 130 MG,Q3W
     Route: 042
     Dates: start: 20140303, end: 20140303
  5. HERCEPTIN [Concomitant]
     Active Substance: TRASTUZUMAB
  6. GLIPIZIDE. [Concomitant]
     Active Substance: GLIPIZIDE
     Dosage: UNK UNK,UNK
     Route: 065
     Dates: start: 2015
  7. NOVOLIN [Concomitant]
     Active Substance: INSULIN HUMAN
     Dosage: UNK UNK,UNK
     Route: 065
     Dates: start: 2014

REACTIONS (1)
  - Alopecia [Recovering/Resolving]

NARRATIVE: CASE EVENT DATE: 201403
